FAERS Safety Report 10967368 (Version 1)
Quarter: 2015Q1

REPORT INFORMATION
  Report Type: Report from Study
  Country: NL (occurrence: NL)
  Receive Date: 20150330
  Receipt Date: 20150330
  Transmission Date: 20150721
  Serious: Yes (Hospitalization)
  Sender: FDA-Public Use
  Company Number: NL-ABBVIE-14P-114-1325531-00

PATIENT
  Age: 71 Year
  Sex: Male
  Weight: 84 kg

DRUGS (1)
  1. DUODOPA [Suspect]
     Active Substance: CARBIDOPA\LEVODOPA
     Indication: PARKINSON^S DISEASE
     Dosage: 20/5MG/ML, MD: 10.0, CD 3.5, ED: 2.5, ND: NO NIGHT DOSE
     Route: 050
     Dates: start: 20100910

REACTIONS (2)
  - On and off phenomenon [Recovered/Resolved]
  - Cholangitis [Unknown]

NARRATIVE: CASE EVENT DATE: 20141207
